FAERS Safety Report 17073900 (Version 2)
Quarter: 2021Q3

REPORT INFORMATION
  Report Type: Report from Study
  Country: US (occurrence: US)
  Receive Date: 20191126
  Receipt Date: 20210902
  Transmission Date: 20211014
  Serious: Yes (Hospitalization)
  Sender: FDA-Public Use
  Company Number: US-ROCHE-2325840

PATIENT
  Age: 73 Year
  Sex: Male
  Weight: 66.7 kg

DRUGS (3)
  1. PIRFENIDONE. [Suspect]
     Active Substance: PIRFENIDONE
     Indication: NON-SMALL CELL LUNG CANCER
     Dosage: 267 MG CAPSULES BY MOUTH (PO) 3 TIMES PER DAY (TID). DOSE ESCALATION: LEVEL 1:ONE CAPSULE (TOTAL DAI
     Route: 048
     Dates: start: 20181011
  2. CARBOPLATIN. [Suspect]
     Active Substance: CARBOPLATIN
     Indication: NON-SMALL CELL LUNG CANCER
     Dosage: ON 26/NOV/2018, HE RECEIVED THE MOST RECENT DOSE OF CARBOPLATIN (03 DOSES).?AREA UNDER THE CURVE (AU
     Route: 042
     Dates: start: 20181011
  3. PEMETREXED. [Suspect]
     Active Substance: PEMETREXED
     Indication: NON-SMALL CELL LUNG CANCER
     Dosage: ON 26/NOV/2018, HE RECEIVED THE MOST RECENT DOSE OF PEMETREXED (03 DOSES).?500 MG/M^2 ON DAY 1 OF A
     Route: 042
     Dates: start: 20181011

REACTIONS (2)
  - Abdominal pain [Recovered/Resolved]
  - Anaemia [Recovered/Resolved with Sequelae]

NARRATIVE: CASE EVENT DATE: 20190412
